FAERS Safety Report 8398813-7 (Version None)
Quarter: 2012Q2

REPORT INFORMATION
  Report Type: 
  Country: None (occurrence: None)
  Receive Date: 20120524
  Receipt Date: 20120511
  Transmission Date: 20120825
  Serious: Yes (Other)
  Sender: FDA-Public Use
  Company Number: 09-AUR-10262

PATIENT
  Age: 14 Year
  Sex: Female
  Weight: 55 kg

DRUGS (1)
  1. METFFORMIN HYDROCHLORIDE [Suspect]
     Indication: PRODUCT USED FOR UNKNOWN INDICATION
     Dosage: (500 MG, 1 D), ORAL
     Route: 048
     Dates: end: 20090424

REACTIONS (3)
  - BLOOD CREATININE INCREASED [None]
  - MUSCLE SPASMS [None]
  - LACTIC ACIDOSIS [None]
